FAERS Safety Report 8366009-0 (Version None)
Quarter: 2012Q2

REPORT INFORMATION
  Report Type: 
  Country: None (occurrence: None)
  Receive Date: 20120517
  Receipt Date: 20120510
  Transmission Date: 20120825
  Serious: Yes (Other)
  Sender: FDA-Public Use
  Company Number: US-PFIZER INC-2011312718

PATIENT
  Sex: Male

DRUGS (4)
  1. CHANTIX [Suspect]
     Indication: SMOKING CESSATION THERAPY
     Dosage: UNK
     Dates: start: 20090301
  2. CHANTIX [Suspect]
     Dosage: UNK
     Dates: start: 20090501, end: 20090801
  3. VICODIN [Concomitant]
     Indication: ANALGESIC THERAPY
     Dosage: UNK
     Dates: start: 20060101, end: 20100101
  4. SUBOXONE [Concomitant]
     Indication: DRUG ABUSE
     Dosage: UNK
     Dates: start: 20080101, end: 20100101

REACTIONS (7)
  - ANXIETY [None]
  - SUICIDE ATTEMPT [None]
  - AMNESIA [None]
  - DEPRESSION [None]
  - INSOMNIA [None]
  - ABNORMAL DREAMS [None]
  - LOSS OF CONSCIOUSNESS [None]
